FAERS Safety Report 7116879-9 (Version None)
Quarter: 2010Q4

REPORT INFORMATION
  Report Type: 
  Country: None (occurrence: None)
  Receive Date: 20101115
  Receipt Date: 20101108
  Transmission Date: 20110411
  Serious: Yes (Death, Hospitalization)
  Sender: FDA-Public Use
  Company Number: 1000017218

PATIENT
  Age: 76 Year
  Sex: Male
  Weight: 63.5 kg

DRUGS (10)
  1. NAMENDA [Suspect]
     Indication: DEMENTIA ALZHEIMER'S TYPE
     Dosage: 5 MG, 5 MG, 1 IN 1 D), ORAL
     Route: 048
     Dates: start: 20000101
  2. ARICEPT [Suspect]
     Indication: DEMENTIA ALZHEIMER'S TYPE
     Dosage: (5 MG (5 MG, 1 IN1  D), ORAL) (10 MG, (10 MG, 1 IN 1 D), ORAL)
     Route: 048
     Dates: start: 20000101
  3. ARICEPT [Suspect]
     Indication: DEMENTIA ALZHEIMER'S TYPE
     Dosage: (5 MG (5 MG, 1 IN1  D), ORAL) (10 MG, (10 MG, 1 IN 1 D), ORAL)
     Route: 048
     Dates: start: 20000101
  4. VIAGRA [Suspect]
     Indication: PROSTATIC DISORDER
     Dosage: ORAL
     Route: 048
     Dates: start: 19900101, end: 20090101
  5. SEROQUEL [Concomitant]
  6. DEPAKOTE [Concomitant]
  7. ZYPREXA [Concomitant]
  8. POLYTHYLENE GLYCOL (MACROGOL) [Concomitant]
  9. MIRTAZAPINE [Concomitant]
  10. NAPROXEN [Concomitant]

REACTIONS (7)
  - CYSTITIS [None]
  - DEMENTIA ALZHEIMER'S TYPE [None]
  - DIZZINESS [None]
  - LABILE BLOOD PRESSURE [None]
  - NAUSEA [None]
  - TOOTH INFECTION [None]
  - TREMOR [None]
